FAERS Safety Report 8464883-0 (Version None)
Quarter: 2012Q2

REPORT INFORMATION
  Report Type: 
  Country: None (occurrence: None)
  Receive Date: 20120626
  Receipt Date: 20120613
  Transmission Date: 20120825
  Serious: Yes (Other)
  Sender: FDA-Public Use
  Company Number: US-ELI_LILLY_AND_COMPANY-US201205000155

PATIENT
  Sex: Female

DRUGS (4)
  1. HUMULIN N [Suspect]
     Dosage: 90 U, TID
  2. HUMULIN N [Suspect]
     Dosage: 65 U, AT NIGHT
     Dates: start: 20110101
  3. HUMULIN N [Suspect]
     Dosage: 80 U, AT LUNCH
     Dates: start: 20110101
  4. HUMULIN N [Suspect]
     Indication: TYPE 2 DIABETES MELLITUS
     Dosage: 80 U, EACH MORNING
     Dates: start: 20110101

REACTIONS (6)
  - DYSPNOEA [None]
  - MUSCULOSKELETAL DISORDER [None]
  - WEIGHT INCREASED [None]
  - PRURITUS [None]
  - FLUID RETENTION [None]
  - PERIARTHRITIS [None]
